FAERS Safety Report 9863406 (Version 2)
Quarter: 2014Q1

REPORT INFORMATION
  Report Type: Spontaneous
  Country: NL (occurrence: NL)
  Receive Date: 20140203
  Receipt Date: 20140220
  Transmission Date: 20141002
  Serious: Yes (Life-Threatening)
  Sender: FDA-Public Use
  Company Number: NL-TEVA-459537ISR

PATIENT
  Age: 45 Year
  Sex: Male
  Weight: 102 kg

DRUGS (4)
  1. KINIDINE DRAGEE 200MG [Suspect]
     Indication: ARRHYTHMIA
     Dosage: 600 MILLIGRAM DAILY; THREE TIMES DAILY 1 PIECE
     Route: 048
     Dates: start: 20130401
  2. METOPROLOL TABLET MGA 100MG (SUCCINAAT) [Interacting]
     Indication: ARRHYTHMIA
     Dosage: 100 MILLIGRAM DAILY; ONCE DAILY 1 PIECE
     Route: 048
     Dates: start: 20130401
  3. ACETYLSALICYLZUUR TABLET  80MG [Concomitant]
     Indication: ARRHYTHMIA
     Dosage: 80 MILLIGRAM DAILY; ONCE DAILY 1 PIECE
     Route: 048
     Dates: start: 20130401
  4. ACETYLSALICYLZUUR TABLET  80MG [Concomitant]
     Dates: start: 20100315

REACTIONS (5)
  - Drug interaction [Recovering/Resolving]
  - Ventricular tachycardia [Recovering/Resolving]
  - Pain in extremity [Unknown]
  - Amnesia [Unknown]
  - Peripheral coldness [Unknown]
